FAERS Safety Report 4359749-1 (Version None)
Quarter: 2004Q2

REPORT INFORMATION
  Report Type: 
  Country: None (occurrence: None)
  Receive Date: 20040512
  Receipt Date: 20040504
  Transmission Date: 20050107
  Serious: No
  Sender: FDA-Public Use
  Company Number: 2004PK00789

PATIENT
  Sex: Male

DRUGS (3)
  1. CASODEX [Suspect]
     Indication: PROSTATE CANCER METASTATIC
     Dates: start: 20031201, end: 20040424
  2. ENANTONE [Concomitant]
  3. VIOXX [Concomitant]

REACTIONS (3)
  - ABDOMINAL PAIN [None]
  - HEPATOMEGALY [None]
  - TRANSAMINASES INCREASED [None]
